FAERS Safety Report 15098439 (Version 1)
Quarter: 2018Q3

REPORT INFORMATION
  Report Type: Spontaneous
  Country: US (occurrence: US)
  Receive Date: 20180702
  Receipt Date: 20180702
  Transmission Date: 20181010
  Serious: No
  Sender: FDA-Public Use
  Company Number: US-MAYNE PHARMA-2018MYN000898

PATIENT

DRUGS (1)
  1. SRONYX [Suspect]
     Active Substance: ETHINYL ESTRADIOL\LEVONORGESTREL
     Indication: PRODUCT USED FOR UNKNOWN INDICATION
     Dosage: UNK
     Route: 048
     Dates: start: 2015

REACTIONS (2)
  - Blood testosterone abnormal [Unknown]
  - Alopecia [Unknown]

NARRATIVE: CASE EVENT DATE: 2017
